FAERS Safety Report 6579779 (Version 10)
Quarter: 2013Q1

REPORT INFORMATION
  Report Type: Spontaneous
  Country: US (occurrence: US)
  Receive Date: 20080313
  Receipt Date: 20130121
  Transmission Date: 20140127
  Serious: Yes (Death, Hospitalization, Other)
  Sender: FDA-Public Use
  Company Number: PHEH2008US02535

PATIENT
  Age: 44 None
  Sex: Female

DRUGS (17)
  1. AREDIA [Suspect]
  2. CHEMOTHERAPEUTICS NOS [Suspect]
  3. COMPAZINE [Concomitant]
  4. OXYFAST [Concomitant]
  5. ZOLOFT (SERTRALINE) [Concomitant]
  6. MEGACE [Concomitant]
  7. ELAVIL [Concomitant]
  8. COLACE [Concomitant]
  9. SENOKOT [Concomitant]
  10. MYCELEX [Concomitant]
  11. OXYCONTIN [Concomitant]
  12. FEMARA [Concomitant]
  13. PROTONIX [Concomitant]
  14. IBUPROFEN [Concomitant]
  15. PHENERGAN [Concomitant]
  16. MARINOL [Concomitant]
  17. INDOCID [Concomitant]

REACTIONS (67)
  - Death [Fatal]
  - Osteonecrosis of jaw [Unknown]
  - Pain [Unknown]
  - Infection [Unknown]
  - Deformity [Unknown]
  - Injury [Unknown]
  - Anxiety [Unknown]
  - Physical disability [Unknown]
  - Pain in jaw [Unknown]
  - Intervertebral disc protrusion [Unknown]
  - Osteomyelitis [Unknown]
  - Paraesthesia [Unknown]
  - Hypoaesthesia [Unknown]
  - Bone lesion [Unknown]
  - Metastatic neoplasm [Unknown]
  - Mastoiditis [Unknown]
  - Nausea [Unknown]
  - Vomiting [Unknown]
  - Neoplasm progression [Unknown]
  - Neoplasm malignant [Unknown]
  - Metastases to liver [Unknown]
  - Metastases to bone [Unknown]
  - Compression fracture [Unknown]
  - Catheter site haemorrhage [Unknown]
  - Cardiac murmur [Unknown]
  - Urinary tract infection [Unknown]
  - Anaemia of chronic disease [Unknown]
  - Dizziness [Unknown]
  - Osteoarthritis [Unknown]
  - Back pain [Unknown]
  - Sciatica [Unknown]
  - Spinal osteoarthritis [Unknown]
  - Arthralgia [Unknown]
  - Myalgia [Unknown]
  - Ileus [Unknown]
  - Constipation [Recovering/Resolving]
  - Dehydration [Unknown]
  - Abdominal pain [Unknown]
  - Ovarian cyst [Unknown]
  - Electrocardiogram T wave inversion [Unknown]
  - Chest pain [Unknown]
  - Musculoskeletal pain [Unknown]
  - Diaphragmatic disorder [Unknown]
  - Pulmonary granuloma [Unknown]
  - Bronchitis [Unknown]
  - Pneumonia [Unknown]
  - Respiratory tract infection [Unknown]
  - Gastrooesophageal reflux disease [Unknown]
  - Ear pain [Unknown]
  - Dyspnoea [Unknown]
  - Cough [Unknown]
  - Pyrexia [Unknown]
  - Malaise [Unknown]
  - Lymphoedema [Unknown]
  - Spondylolisthesis [Unknown]
  - Spinal disorder [Unknown]
  - Lumbar spine flattening [Unknown]
  - Neutropenia [Unknown]
  - Conjunctivitis [Unknown]
  - Alopecia [Unknown]
  - Leukopenia [Unknown]
  - Hand fracture [Unknown]
  - Device related infection [Unknown]
  - Pharyngitis [Unknown]
  - Pleural effusion [Unknown]
  - Lymph node calcification [Unknown]
  - Pulmonary mass [Unknown]
